FAERS Safety Report 22311500 (Version 2)
Quarter: 2023Q2

REPORT INFORMATION
  Report Type: Spontaneous
  Country: US (occurrence: US)
  Receive Date: 20230511
  Receipt Date: 20230614
  Transmission Date: 20230722
  Serious: No
  Sender: FDA-Public Use
  Company Number: US-LUNDBECK-DKLU3061776

PATIENT
  Age: 77 Year
  Sex: Female

DRUGS (2)
  1. VYEPTI [Suspect]
     Active Substance: EPTINEZUMAB-JJMR
     Indication: Product used for unknown indication
     Route: 041
     Dates: start: 2023
  2. EMGALITY [Concomitant]
     Active Substance: GALCANEZUMAB-GNLM
     Indication: Migraine
     Route: 065

REACTIONS (4)
  - Drug ineffective [Recovered/Resolved]
  - Dizziness [Recovered/Resolved]
  - Gait disturbance [Recovered/Resolved]
  - Fatigue [Not Recovered/Not Resolved]
